FAERS Safety Report 10570861 (Version 1)
Quarter: 2014Q4

REPORT INFORMATION
  Report Type: Spontaneous
  Country: US (occurrence: None)
  Receive Date: 20141106
  Receipt Date: 20141106
  Transmission Date: 20150529
  Serious: Yes (Other)
  Sender: FDA-Public Use
  Company Number: None

PATIENT
  Age: 73 Year
  Sex: Male
  Weight: 107.05 kg

DRUGS (2)
  1. ALENDRONATE 70MG AUSTAR PHARMA/VIRTUS PHARMACEUTICA [Suspect]
     Active Substance: ALENDRONATE SODIUM
     Indication: BLOOD CALCIUM ABNORMAL
     Dosage: 1 TABLET ONCE WEEKLY ORAL
     Route: 048
  2. ALENDRONATE 70MG AUSTAR PHARMA/VIRTUS PHARMACEUTICA [Suspect]
     Active Substance: ALENDRONATE SODIUM
     Indication: OSTEOPOROSIS
     Dosage: 1 TABLET ONCE WEEKLY ORAL
     Route: 048

REACTIONS (4)
  - Swelling [None]
  - Musculoskeletal stiffness [None]
  - Myalgia [None]
  - Product lot number issue [None]

NARRATIVE: CASE EVENT DATE: 20141104
